FAERS Safety Report 18433295 (Version 2)
Quarter: 2020Q4

REPORT INFORMATION
  Report Type: Spontaneous
  Country: ES (occurrence: ES)
  Receive Date: 20201027
  Receipt Date: 20201103
  Transmission Date: 20210114
  Serious: Yes (Other)
  Sender: FDA-Public Use
  Company Number: ES-INDIVIOR US-INDV-126914-2020

PATIENT
  Sex: Male

DRUGS (1)
  1. SUBOXONE [Suspect]
     Active Substance: BUPRENORPHINE HYDROCHLORIDE\NALOXONE HYDROCHLORIDE
     Indication: DRUG DEPENDENCE
     Dosage: PROBABLY 8MG
     Route: 048
     Dates: start: 2018, end: 2019

REACTIONS (4)
  - Drug withdrawal syndrome [Unknown]
  - Intentional product use issue [Recovered/Resolved]
  - Urethral stenosis [Recovered/Resolved]
  - Drug dependence [Recovered/Resolved]

NARRATIVE: CASE EVENT DATE: 2018
